FAERS Safety Report 9539732 (Version 1)
Quarter: 2013Q3

REPORT INFORMATION
  Report Type: Spontaneous
  Country: US (occurrence: US)
  Receive Date: 20130920
  Receipt Date: 20130920
  Transmission Date: 20140515
  Serious: No
  Sender: FDA-Public Use
  Company Number: US-PURDUE-USA-2013-0100495

PATIENT
  Sex: Female

DRUGS (1)
  1. INTERMEZZO [Suspect]
     Indication: SLEEP DISORDER

REACTIONS (2)
  - Rash [Unknown]
  - Drug effect delayed [Unknown]
